FAERS Safety Report 12581432 (Version 1)
Quarter: 2016Q3

REPORT INFORMATION
  Report Type: Spontaneous
  Country: US (occurrence: US)
  Receive Date: 20160721
  Receipt Date: 20160721
  Transmission Date: 20161109
  Serious: No
  Sender: FDA-Public Use
  Company Number: US-PRESTIUM-2015RN000168

PATIENT
  Age: 84 Year
  Sex: Female

DRUGS (4)
  1. CLOBETASOL PROPIONATE. [Suspect]
     Active Substance: CLOBETASOL PROPIONATE
     Indication: SKIN DISORDER
     Dosage: APPLY TWICE DAILY TO SCALP, 50 GM, BID
     Route: 061
     Dates: start: 201505
  2. CLOBETASOL PROPIONATE. [Suspect]
     Active Substance: CLOBETASOL PROPIONATE
     Dosage: UNK, QD
     Route: 061
     Dates: start: 2015
  3. TARGRETIN [Concomitant]
     Active Substance: BEXAROTENE
     Dosage: UNK
  4. VALCHLOR [Concomitant]
     Active Substance: MECHLORETHAMINE

REACTIONS (3)
  - Intentional product use issue [Not Recovered/Not Resolved]
  - Condition aggravated [Not Recovered/Not Resolved]
  - Drug ineffective [Not Recovered/Not Resolved]

NARRATIVE: CASE EVENT DATE: 2015
